FAERS Safety Report 5862647-5 (Version None)
Quarter: 2008Q3

REPORT INFORMATION
  Report Type: 
  Country: None (occurrence: None)
  Receive Date: 20080827
  Receipt Date: 20080827
  Transmission Date: 20090109
  Serious: Yes (Hospitalization)
  Sender: FDA-Public Use
  Company Number: None

PATIENT
  Sex: Female
  Weight: 63.5036 kg

DRUGS (1)
  1. ZOMIG [Suspect]
     Indication: MIGRAINE
     Dosage: 5 MG ONCE PO
     Route: 048
     Dates: start: 20080823, end: 20080823

REACTIONS (6)
  - BODY TEMPERATURE INCREASED [None]
  - CHEST DISCOMFORT [None]
  - COGNITIVE DISORDER [None]
  - CONFUSIONAL STATE [None]
  - HEADACHE [None]
  - MEMORY IMPAIRMENT [None]
